FAERS Safety Report 10706804 (Version 1)
Quarter: 2015Q1

REPORT INFORMATION
  Report Type: Spontaneous
  Country: US (occurrence: None)
  Receive Date: 20150112
  Receipt Date: 20150112
  Transmission Date: 20150721
  Serious: No
  Sender: FDA-Public Use
  Company Number: None

PATIENT
  Age: 9 Year
  Sex: Male
  Weight: 33.11 kg

DRUGS (1)
  1. TAMIFLU [Suspect]
     Active Substance: OSELTAMIVIR PHOSPHATE
     Indication: INFLUENZA A VIRUS TEST POSITIVE

REACTIONS (9)
  - Fear [None]
  - Insomnia [None]
  - Oral discomfort [None]
  - Panic reaction [None]
  - Paranoia [None]
  - Hallucination, visual [None]
  - Crying [None]
  - Hallucination, auditory [None]
  - Confusional state [None]

NARRATIVE: CASE EVENT DATE: 20150106
